FAERS Safety Report 16718662 (Version 1)
Quarter: 2019Q3

REPORT INFORMATION
  Report Type: Spontaneous
  Country: US (occurrence: US)
  Receive Date: 20190820
  Receipt Date: 20190820
  Transmission Date: 20191005
  Serious: Yes (Hospitalization)
  Sender: FDA-Public Use
  Company Number: US-ROCHE-2379946

PATIENT
  Sex: Male

DRUGS (17)
  1. IPRATROPIUM [Concomitant]
     Active Substance: IPRATROPIUM
  2. FINASTERIDE. [Concomitant]
     Active Substance: FINASTERIDE
  3. FUROSEMIDE. [Concomitant]
     Active Substance: FUROSEMIDE
  4. NEBUSAL [Concomitant]
     Active Substance: SODIUM CHLORIDE
  5. ESBRIET [Suspect]
     Active Substance: PIRFENIDONE
     Indication: IDIOPATHIC PULMONARY FIBROSIS
     Dosage: ONGOING: YES
     Route: 048
     Dates: start: 20170722
  6. ATORVASTATIN [Concomitant]
     Active Substance: ATORVASTATIN
  7. DOXYCYCLINE. [Concomitant]
     Active Substance: DOXYCYCLINE
  8. ELIQUIS [Concomitant]
     Active Substance: APIXABAN
  9. TOBRAMYCIN. [Concomitant]
     Active Substance: TOBRAMYCIN
  10. MIRTAZAPINE. [Concomitant]
     Active Substance: MIRTAZAPINE
  11. SOTALOL. [Concomitant]
     Active Substance: SOTALOL
  12. DRONABINOL. [Concomitant]
     Active Substance: DRONABINOL
  13. LEVOTHYROXINE. [Concomitant]
     Active Substance: LEVOTHYROXINE
  14. NITROGLYCERINE [Concomitant]
     Active Substance: NITROGLYCERIN
  15. CEPHALEXIN [CEFALEXIN] [Concomitant]
     Active Substance: CEPHALEXIN
  16. SODIUM CHLORIDE. [Concomitant]
     Active Substance: SODIUM CHLORIDE
  17. URINOZINC [Concomitant]

REACTIONS (1)
  - Pyrexia [Unknown]

NARRATIVE: CASE EVENT DATE: 2019
